FAERS Safety Report 23537408 (Version 2)
Quarter: 2024Q1

REPORT INFORMATION
  Report Type: Report from Study
  Country: US (occurrence: US)
  Receive Date: 20240219
  Receipt Date: 20240227
  Transmission Date: 20240410
  Serious: Yes (Hospitalization)
  Sender: FDA-Public Use
  Company Number: US-AURINIA PHARMACEUTICALS INC.-AUR-004819

PATIENT
  Sex: Female

DRUGS (5)
  1. LUPKYNIS [Suspect]
     Active Substance: VOCLOSPORIN
     Indication: Lupus nephritis
     Dosage: 23.7 MILLIGRAM, BID
     Route: 048
     Dates: start: 20220310
  2. LINZESS [Concomitant]
     Active Substance: LINACLOTIDE
     Indication: Product used for unknown indication
     Dosage: UNK, QD
  3. DOCUSATE SODIUM [Concomitant]
     Active Substance: DOCUSATE SODIUM
     Indication: Product used for unknown indication
     Dosage: UNK
  4. MIRALAX [Concomitant]
     Active Substance: POLYETHYLENE GLYCOL 3350
     Indication: Product used for unknown indication
     Dosage: UNK
  5. SAPHNELO [ANIFROLUMAB FNIA] [Concomitant]
     Indication: Product used for unknown indication
     Dosage: UNK

REACTIONS (6)
  - Gallbladder disorder [Unknown]
  - Nausea [Unknown]
  - Feeling abnormal [Unknown]
  - Constipation [Unknown]
  - Faeces hard [Unknown]
  - Therapy interrupted [Unknown]
